FAERS Safety Report 5696497-X (Version None)
Quarter: 2008Q2

REPORT INFORMATION
  Report Type: 
  Country: None (occurrence: None)
  Receive Date: 20080408
  Receipt Date: 20080402
  Transmission Date: 20081010
  Serious: Yes (Death, Other)
  Sender: FDA-Public Use
  Company Number: CL-BRISTOL-MYERS SQUIBB COMPANY-14136857

PATIENT
  Age: 29 Year
  Sex: Male

DRUGS (1)
  1. AMPHOTERICIN B [Suspect]
     Indication: HISTOPLASMOSIS

REACTIONS (3)
  - AGITATION [None]
  - DEATH [None]
  - OXYGEN SATURATION DECREASED [None]
